FAERS Safety Report 6559030-6 (Version None)
Quarter: 2010Q1

REPORT INFORMATION
  Report Type: 
  Country: None (occurrence: None)
  Receive Date: 20100129
  Receipt Date: 20100120
  Transmission Date: 20100710
  Serious: Yes (Death, Hospitalization)
  Sender: FDA-Public Use
  Company Number: US-BAXTER-2009BH019592

PATIENT
  Age: 68 Year
  Sex: Female

DRUGS (4)
  1. DIANEAL [Suspect]
     Indication: PERITONEAL DIALYSIS
     Route: 033
     Dates: start: 20070101, end: 20091201
  2. DIANEAL [Suspect]
     Route: 033
     Dates: start: 20070101, end: 20091201
  3. DIANEAL [Suspect]
     Indication: PERITONEAL DIALYSIS
     Route: 033
     Dates: start: 20090101, end: 20091201
  4. DIANEAL [Suspect]
     Route: 033
     Dates: start: 20090101, end: 20091201

REACTIONS (4)
  - ADVERSE EVENT [None]
  - BLOOD PRESSURE ABNORMAL [None]
  - MYOCARDIAL INFARCTION [None]
  - VASCULAR INSUFFICIENCY [None]
